FAERS Safety Report 7356537-9 (Version None)
Quarter: 2011Q1

REPORT INFORMATION
  Report Type: 
  Country: None (occurrence: None)
  Receive Date: 20110316
  Receipt Date: 20110302
  Transmission Date: 20110831
  Serious: Yes (Other)
  Sender: FDA-Public Use
  Company Number: PHFR2011GB01136

PATIENT
  Sex: Female
  Weight: 109 kg

DRUGS (8)
  1. METFORMIN HCL [Concomitant]
     Indication: DIABETES MELLITUS
     Dosage: 2000 MG
     Route: 048
  2. ORLISTAT [Concomitant]
     Indication: HYPERLIPIDAEMIA
     Dosage: 160 MG
     Route: 048
     Dates: start: 20100101
  3. CLOZARIL [Suspect]
     Indication: INTENTIONAL SELF-INJURY
     Dosage: 250 MG, UNK
     Route: 048
     Dates: start: 20070627
  4. CLOZARIL [Suspect]
     Indication: AGGRESSION
  5. LEVOTHYROXINE [Concomitant]
     Indication: HYPOTHYROIDISM
     Dosage: 50 UG
     Route: 048
  6. VALPROATE SODIUM [Concomitant]
     Indication: AFFECTIVE DISORDER
     Dosage: 700 MG
     Route: 048
  7. INSULIN [Concomitant]
     Dosage: UNK
     Route: 058
  8. ATENOLOL [Concomitant]
     Indication: BLOOD PRESSURE INCREASED
     Dosage: 50 MG
     Route: 048

REACTIONS (2)
  - HAEMOGLOBIN DECREASED [None]
  - MICROCYTOSIS [None]
